FAERS Safety Report 8859620 (Version 2)
Quarter: 2012Q4

REPORT INFORMATION
  Report Type: 
  Country: CA (occurrence: CA)
  Receive Date: 20121025
  Receipt Date: 20121101
  Transmission Date: 20130627
  Serious: Yes (Hospitalization)
  Sender: FDA-Public Use
  Company Number: CA-ABBOTT-12P-028-0995387-00

PATIENT
  Age: 41 Year
  Sex: Male
  Weight: 97.61 kg

DRUGS (4)
  1. BIAXIN XL [Suspect]
     Indication: BRONCHITIS
     Route: 048
     Dates: start: 20121009
  2. LEVEMIR [Concomitant]
     Indication: TYPE 1 DIABETES MELLITUS
     Route: 058
  3. NOVORAPID [Concomitant]
     Indication: TYPE 1 DIABETES MELLITUS
     Dosage: 19 units morning and lunch time, 25 units at night
     Route: 058
  4. LIPITOR [Concomitant]
     Indication: BLOOD CHOLESTEROL
     Route: 048

REACTIONS (2)
  - Diabetic coma [Recovered/Resolved]
  - Blood glucose decreased [Unknown]
